FAERS Safety Report 4762665-4 (Version None)
Quarter: 2005Q3

REPORT INFORMATION
  Report Type: 
  Country: None (occurrence: None)
  Receive Date: 20050907
  Receipt Date: 20050830
  Transmission Date: 20060218
  Serious: Yes (Hospitalization)
  Sender: FDA-Public Use
  Company Number: PHEH2005US09680

PATIENT
  Age: 25 Year
  Sex: Female

DRUGS (1)
  1. METHERGINE [Suspect]
     Indication: CAESAREAN SECTION
     Dosage: 0.2 MG, ONCE/SINGLE
     Route: 030
     Dates: start: 20050825, end: 20050825

REACTIONS (2)
  - HAEMORRHAGIC STROKE [None]
  - HEMIPLEGIA [None]
